FAERS Safety Report 6317154-2 (Version None)
Quarter: 2009Q3

REPORT INFORMATION
  Report Type: 
  Country: None (occurrence: None)
  Receive Date: 20090819
  Receipt Date: 20090807
  Transmission Date: 20100115
  Serious: Yes (Hospitalization)
  Sender: FDA-Public Use
  Company Number: 2009-03001

PATIENT
  Age: 50 Year
  Sex: Female
  Weight: 79.4 kg

DRUGS (5)
  1. VELCADE [Suspect]
     Indication: HEAD AND NECK CANCER
     Dosage: 1.3 MG/M2, INTRAVENOUS
     Route: 042
     Dates: start: 20090713, end: 20090723
  2. CISPLATIN [Suspect]
     Indication: HEAD AND NECK CANCER
     Dosage: 30 MG/M2, INTRAVENOUS
     Route: 042
     Dates: start: 20090713, end: 20090720
  3. HYDROCODONE (HYDROCODONE) [Concomitant]
  4. ERYTHROMYCIN [Concomitant]
  5. NEXIUM [Concomitant]

REACTIONS (5)
  - DIZZINESS [None]
  - ESCHERICHIA URINARY TRACT INFECTION [None]
  - HAEMATURIA [None]
  - NAUSEA [None]
  - VOMITING [None]
